FAERS Safety Report 8855062 (Version 3)
Quarter: 2013Q1

REPORT INFORMATION
  Report Type: Spontaneous
  Country: US (occurrence: US)
  Receive Date: 20121023
  Receipt Date: 20130321
  Transmission Date: 20140127
  Serious: Yes (Hospitalization)
  Sender: FDA-Public Use
  Company Number: US-BAYER-2012-110394

PATIENT
  Age: 45 Year
  Sex: Female
  Weight: 99.77 kg

DRUGS (12)
  1. YAZ [Suspect]
     Indication: PROPHYLAXIS
     Dosage: UNK
     Dates: start: 200805, end: 201111
  2. YAZ [Suspect]
     Indication: PREMENSTRUAL SYNDROME
  3. YASMIN [Suspect]
     Indication: PROPHYLAXIS
     Dosage: UNK
     Dates: start: 200805, end: 201111
  4. YASMIN [Suspect]
     Indication: PREMENSTRUAL SYNDROME
  5. AMOXICILLIN [Concomitant]
  6. NAPROXEN [Concomitant]
     Indication: NECK PAIN
  7. SERTRALINE [Concomitant]
  8. RANITIDINE [Concomitant]
  9. SINGULAIR [Concomitant]
  10. VERAMYST [Concomitant]
  11. AMOXICILLIN W/CLAVULANATE POTASSIUM [Concomitant]
  12. ADVIL [Concomitant]
     Indication: NECK PAIN

REACTIONS (3)
  - Pulmonary embolism [None]
  - Depression [None]
  - Off label use [None]
